FAERS Safety Report 13675280 (Version 1)
Quarter: 2017Q2

REPORT INFORMATION
  Report Type: Spontaneous
  Country: US (occurrence: US)
  Receive Date: 20170621
  Receipt Date: 20170621
  Transmission Date: 20170830
  Serious: Yes (Other)
  Sender: FDA-Public Use
  Company Number: US-MYLANLABS-2017M1016768

PATIENT

DRUGS (6)
  1. BUPIVACAINE. [Suspect]
     Active Substance: BUPIVACAINE
     Indication: INDUCTION OF ANAESTHESIA
     Dosage: 0.5ML OF 0.25% BUPIVACAINE, ALONG WITH 0.3ML OF 50MICROG/L FENTANYL
     Route: 037
  2. LIDOCAINE. [Concomitant]
     Active Substance: LIDOCAINE
     Indication: PRODUCT USED FOR UNKNOWN INDICATION
     Dosage: 1.5%; RECEIVED 45MG LIDOCAINE TEST DOSE
     Route: 008
  3. FENTANYL. [Concomitant]
     Active Substance: FENTANYL
     Indication: INDUCTION OF ANAESTHESIA
     Dosage: 0.3ML OF 50MICROG/L FENTANYL
     Route: 037
  4. FENTANYL. [Concomitant]
     Active Substance: FENTANYL
     Dosage: 6ML BOLUS (EPIDURAL INFUSION) AT A RATE OF 6 MUH ALONG
     Route: 008
  5. EPINEPHRINE. [Concomitant]
     Active Substance: EPINEPHRINE
     Indication: PRODUCT USED FOR UNKNOWN INDICATION
     Dosage: 1 :200,000; TEST DOSE
     Route: 065
  6. BUPIVACAINE. [Suspect]
     Active Substance: BUPIVACAINE
     Dosage: 0.1%: 6ML BOLUS (EPIDURAL INFUSION) AT A RATE OF 6 MUH
     Route: 008

REACTIONS (8)
  - Dysgeusia [Recovered/Resolved]
  - Toxicity to various agents [Recovered/Resolved]
  - Dissociation [Recovered/Resolved]
  - Sinus tachycardia [Recovered/Resolved]
  - Exposure during pregnancy [Recovered/Resolved]
  - Tinnitus [Recovered/Resolved]
  - Neurotoxicity [Recovered/Resolved]
  - Feeling abnormal [Recovered/Resolved]
